FAERS Safety Report 7368924-3 (Version None)
Quarter: 2011Q1

REPORT INFORMATION
  Report Type: 
  Country: None (occurrence: None)
  Receive Date: 20110323
  Receipt Date: 20110316
  Transmission Date: 20110831
  Serious: Yes (Hospitalization)
  Sender: FDA-Public Use
  Company Number: US-ALEXION-A201000485

PATIENT
  Sex: Female

DRUGS (5)
  1. COUMADIN [Concomitant]
     Dosage: 5 MG, QD
  2. FERROUS GLUCONATE [Concomitant]
     Dosage: 325 MG, QD
  3. PAROXETINE HCL [Concomitant]
     Dosage: 20 MG, QD
     Route: 048
  4. SOLIRIS [Suspect]
     Indication: PAROXYSMAL NOCTURNAL HAEMOGLOBINURIA
     Dosage: 900 MG, Q 10 DAYS
     Route: 042
     Dates: start: 20080101
  5. FOLIC ACID [Concomitant]
     Dosage: 1 MG, QD

REACTIONS (1)
  - HAEMOLYSIS [None]
